FAERS Safety Report 11852592 (Version 2)
Quarter: 2016Q1

REPORT INFORMATION
  Report Type: Spontaneous
  Country: US (occurrence: US)
  Receive Date: 20151218
  Receipt Date: 20160113
  Transmission Date: 20160526
  Serious: Yes (Other)
  Sender: FDA-Public Use
  Company Number: US-LPDUSPRD-20151029

PATIENT
  Age: 27 Year
  Sex: Female

DRUGS (2)
  1. THIAMAZOLE (METHIMAZOLE) [Concomitant]
     Dosage: DOSE NOT STATED
     Route: 065
  2. METOPROLOL INJECTION, USP (1355-10) [Suspect]
     Active Substance: METOPROLOL
     Dosage: DOSE NOT STATED
     Route: 065

REACTIONS (1)
  - Cardiac arrest [Unknown]
